FAERS Safety Report 8253349-9 (Version None)
Quarter: 2012Q2

REPORT INFORMATION
  Report Type: 
  Country: None (occurrence: None)
  Receive Date: 20120402
  Receipt Date: 20120312
  Transmission Date: 20120825
  Serious: Yes (Other)
  Sender: FDA-Public Use
  Company Number: US-AMGEN-USASP2012016396

PATIENT
  Age: 68 Year
  Sex: Male

DRUGS (1)
  1. ENBREL [Suspect]
     Indication: RHEUMATOID ARTHRITIS
     Dosage: 50 MG, QWK
     Dates: start: 20060101

REACTIONS (6)
  - SQUAMOUS CELL CARCINOMA OF SKIN [None]
  - DYSPHONIA [None]
  - SKIN PAPILLOMA [None]
  - CONTUSION [None]
  - BASAL CELL CARCINOMA [None]
  - HEAD INJURY [None]
